FAERS Safety Report 8848599 (Version 2)
Quarter: 2012Q4

REPORT INFORMATION
  Report Type: 
  Country: DE (occurrence: DE)
  Receive Date: 20121018
  Receipt Date: 20121023
  Transmission Date: 20130627
  Serious: Yes (Other)
  Sender: FDA-Public Use
  Company Number: DE-FRI-1000039492

PATIENT
  Age: 86 Year
  Sex: Male
  Weight: 100 kg

DRUGS (4)
  1. MEMANTINE [Suspect]
     Dosage: 10 mg
     Route: 048
     Dates: start: 20121009, end: 20121009
  2. RISPERIDONE [Suspect]
     Dosage: 1 mg
     Route: 048
     Dates: start: 20121009, end: 20121009
  3. QUETIAPINE [Suspect]
     Dosage: 75 mg
     Route: 048
     Dates: start: 20121009, end: 20121009
  4. FLUOXETINE HYDROCHLORIDE [Suspect]
     Dosage: 20 mg
     Route: 048
     Dates: start: 20121009, end: 20121009

REACTIONS (3)
  - Accidental exposure to product [Unknown]
  - Chills [Unknown]
  - Bundle branch block left [Unknown]
